FAERS Safety Report 8119396-2 (Version None)
Quarter: 2012Q1

REPORT INFORMATION
  Report Type: 
  Country: None (occurrence: None)
  Receive Date: 20120203
  Receipt Date: 20120123
  Transmission Date: 20120608
  Serious: Yes (Hospitalization)
  Sender: FDA-Public Use
  Company Number: B0778814A

PATIENT

DRUGS (3)
  1. CISPLATIN [Suspect]
     Indication: CERVIX CARCINOMA
     Dosage: 40 MG/M2
  2. HYCAMTIN [Suspect]
     Indication: CERVIX CARCINOMA
     Dosage: 5 MG/M2 CYCLIC, INTRAVENOUS
     Route: 042
  3. RADIOTHERAPY (RADIOTHERAPY) [Suspect]
     Indication: CERVIX CARCINOMA

REACTIONS (4)
  - NEUTROPHIL COUNT DECREASED [None]
  - ABDOMINAL PAIN [None]
  - HYPOKALAEMIA [None]
  - URINARY TRACT INFECTION [None]
